FAERS Safety Report 26143804 (Version 1)
Quarter: 2025Q4

REPORT INFORMATION
  Report Type: Spontaneous
  Country: IR (occurrence: None)
  Receive Date: 20251211
  Receipt Date: 20251211
  Transmission Date: 20260118
  Serious: Yes (Other)
  Sender: ENCUBE ETHICALS PVT. LTD.
  Company Number: IR-Encube-002647

PATIENT
  Age: 41 Year
  Sex: Female

DRUGS (2)
  1. CLINDAMYCIN PHOSPHATE [Suspect]
     Active Substance: CLINDAMYCIN PHOSPHATE
     Indication: Eye infection toxoplasmal
     Dosage: INJECTION, 1 MG/0.1 ML
  2. DEXAMETHASONE [Concomitant]
     Active Substance: DEXAMETHASONE
     Indication: Eye infection toxoplasmal
     Dosage: INJECTION, 0.4 MG/0.1 ML

REACTIONS (8)
  - Retinal toxicity [Unknown]
  - Blindness unilateral [Not Recovered/Not Resolved]
  - Retinal ischaemia [Not Recovered/Not Resolved]
  - Retinal infarction [Not Recovered/Not Resolved]
  - Toxicity to various agents [Unknown]
  - Off label use [Unknown]
  - Retinal degeneration [Unknown]
  - Macular hole [Unknown]
